FAERS Safety Report 6759033-2 (Version None)
Quarter: 2010Q2

REPORT INFORMATION
  Report Type: 
  Country: None (occurrence: None)
  Receive Date: 20100603
  Receipt Date: 20100525
  Transmission Date: 20101027
  Serious: Yes (Death, Hospitalization)
  Sender: FDA-Public Use
  Company Number: A-CH2010-34352

PATIENT
  Age: 37 Year
  Sex: Female

DRUGS (12)
  1. TRACLEER [Suspect]
     Indication: PULMONARY ARTERIAL HYPERTENSION
     Dosage: 125 MG, BID, ORAL
     Route: 048
     Dates: start: 20020626, end: 20100225
  2. SILDENAFIL CITRATE [Concomitant]
  3. LLANOL (ALLOPURINOL) [Concomitant]
  4. NEXIUM IV [Concomitant]
  5. LIPITOR [Concomitant]
  6. LASIX [Concomitant]
  7. CENTRUM (VITAMINS NOS) [Concomitant]
  8. CALTRATE (CALCIUM) [Concomitant]
  9. VITAMINE C (ASCORBIC ACID) [Concomitant]
  10. POTASSIUM CHLORIDE [Concomitant]
  11. SINECOD (BUTAMIRATE CITRATE) [Concomitant]
  12. HEMOSTAN (TRANEXAMIC ACID) [Concomitant]

REACTIONS (5)
  - CARDIAC ARREST [None]
  - INFLAMMATION [None]
  - OEDEMA [None]
  - RENAL DISORDER [None]
  - UTERINE LEIOMYOMA [None]
